FAERS Safety Report 22025447 (Version 1)
Quarter: 2023Q1

REPORT INFORMATION
  Report Type: Spontaneous
  Country: US (occurrence: None)
  Receive Date: 20230223
  Receipt Date: 20230223
  Transmission Date: 20230418
  Serious: No
  Sender: FDA-Public Use
  Company Number: US-ROCHE-3097325

PATIENT
  Age: 24 Year
  Sex: Female

DRUGS (4)
  1. XOLAIR [Suspect]
     Active Substance: OMALIZUMAB
     Indication: Chronic spontaneous urticaria
     Route: 065
  2. PEPCID [Concomitant]
     Active Substance: FAMOTIDINE
  3. LEVOTHYROXINE [Concomitant]
     Active Substance: LEVOTHYROXINE
  4. DESONIDE [Concomitant]
     Active Substance: DESONIDE

REACTIONS (3)
  - Pruritus [Unknown]
  - Urticaria [Unknown]
  - Dysphonia [Unknown]
